FAERS Safety Report 9012565 (Version 1)
Quarter: 2013Q1

REPORT INFORMATION
  Report Type: Report from Study
  Country: US (occurrence: US)
  Receive Date: 20130114
  Receipt Date: 20130114
  Transmission Date: 20140127
  Serious: Yes (Hospitalization)
  Sender: FDA-Public Use
  Company Number: US-ABBOTT-13P-163-1033961-00

PATIENT
  Sex: Male

DRUGS (5)
  1. HUMIRA [Suspect]
     Indication: CROHN^S DISEASE
     Dates: start: 20120919
  2. PREDNISONE [Concomitant]
     Indication: PRODUCT USED FOR UNKNOWN INDICATION
     Dosage: 20 MG DAILY
  3. UNKNOWN NAUSEA MEDICATION [Concomitant]
     Indication: NAUSEA
  4. UNKNOWN ULCER MEDICATION [Concomitant]
     Indication: ULCER
  5. UNKNOWN ULCER MEDICATION [Concomitant]
     Dosage: 80 MG DAILY

REACTIONS (2)
  - Ulcer [Unknown]
  - Chest pain [Not Recovered/Not Resolved]
